FAERS Safety Report 5652218-8 (Version None)
Quarter: 2008Q1

REPORT INFORMATION
  Report Type: 
  Country: None (occurrence: None)
  Receive Date: 20080304
  Receipt Date: 20080219
  Transmission Date: 20080703
  Serious: Yes (Death, Hospitalization)
  Sender: FDA-Public Use
  Company Number: TRP_01079_2008

PATIENT
  Age: 50 Year
  Sex: Female

DRUGS (1)
  1. AMPHOCIL/AMPHOTERICIN B CHOLESTERYL SULFATE COMPLEX FOR INJECTION [Suspect]
     Indication: DRUG USE FOR UNKNOWN INDICATION
     Dosage: DF INTRAVENOUS (NOT OTHERWISE SPECIFIED)
     Route: 042

REACTIONS (1)
  - ATELECTASIS [None]
